FAERS Safety Report 7609839-2 (Version None)
Quarter: 2011Q3

REPORT INFORMATION
  Report Type: 
  Country: None (occurrence: None)
  Receive Date: 20110714
  Receipt Date: 20110708
  Transmission Date: 20111222
  Serious: Yes (Other)
  Sender: FDA-Public Use
  Company Number: FR-ABBOTT-11P-056-0703422-00

PATIENT
  Sex: Male

DRUGS (1)
  1. HUMIRA [Suspect]
     Indication: PSORIASIS
     Route: 058

REACTIONS (4)
  - ARTHRALGIA [None]
  - PERICARDIAL EFFUSION [None]
  - NIGHT SWEATS [None]
  - WHIPPLE'S DISEASE [None]
